FAERS Safety Report 23675087 (Version 4)
Quarter: 2025Q2

REPORT INFORMATION
  Report Type: Report from Study
  Country: US (occurrence: US)
  Receive Date: 20240326
  Receipt Date: 20250430
  Transmission Date: 20250716
  Serious: Yes (Other)
  Sender: ABBVIE
  Company Number: US-ABBVIE-5690768

PATIENT
  Sex: Male

DRUGS (1)
  1. SKYRIZI [Suspect]
     Active Substance: RISANKIZUMAB-RZAA
     Indication: Psoriasis
     Route: 058
     Dates: start: 20231126

REACTIONS (5)
  - Blindness [Not Recovered/Not Resolved]
  - Memory impairment [Unknown]
  - Psoriasis [Unknown]
  - Visual impairment [Unknown]
  - Therapeutic product effect incomplete [Unknown]
